FAERS Safety Report 12215105 (Version 2)
Quarter: 2016Q2

REPORT INFORMATION
  Report Type: Spontaneous
  Country: US (occurrence: US)
  Receive Date: 20160328
  Receipt Date: 20160415
  Transmission Date: 20160815
  Serious: Yes (Death)
  Sender: FDA-Public Use
  Company Number: US-UNICHEM LABORATORIES LIMITED-UCM201603-000049

PATIENT
  Age: 50 Year
  Sex: Male

DRUGS (11)
  1. DIVALPROEX SODIUM. [Suspect]
     Active Substance: DIVALPROEX SODIUM
     Indication: SCHIZOAFFECTIVE DISORDER
  2. BENZTROPINE [Concomitant]
     Active Substance: BENZTROPINE
     Indication: SCHIZOAFFECTIVE DISORDER
  3. CLOZAPINE. [Suspect]
     Active Substance: CLOZAPINE
     Indication: SCHIZOAFFECTIVE DISORDER
  4. CLOZAPINE. [Suspect]
     Active Substance: CLOZAPINE
  5. CLOZAPINE. [Suspect]
     Active Substance: CLOZAPINE
  6. LISINOPRIL. [Concomitant]
     Active Substance: LISINOPRIL
     Indication: HYPERTENSION
  7. CLOZAPINE. [Suspect]
     Active Substance: CLOZAPINE
  8. CLOZAPINE. [Suspect]
     Active Substance: CLOZAPINE
  9. CLOZAPINE. [Suspect]
     Active Substance: CLOZAPINE
  10. QUETIAPINE. [Concomitant]
     Active Substance: QUETIAPINE
     Indication: SCHIZOAFFECTIVE DISORDER
  11. HYDROCHLOROTHIAZIDE. [Concomitant]
     Active Substance: HYDROCHLOROTHIAZIDE
     Indication: HYPERTENSION

REACTIONS (2)
  - Drug interaction [Fatal]
  - Myocarditis [Fatal]
